FAERS Safety Report 7806811-4 (Version None)
Quarter: 2011Q4

REPORT INFORMATION
  Report Type: 
  Country: None (occurrence: None)
  Receive Date: 20111011
  Receipt Date: 20111005
  Transmission Date: 20120403
  Serious: Yes (Hospitalization, Other)
  Sender: FDA-Public Use
  Company Number: US-PFIZER INC-2011152913

PATIENT
  Sex: Female

DRUGS (2)
  1. CHANTIX [Suspect]
     Indication: SMOKING CESSATION THERAPY
     Dosage: 0.5 MG - 1 MG, TWICE DAILY
     Dates: start: 20070115, end: 20070118
  2. CHANTIX [Suspect]
     Dosage: 0.5 MG - 1 MG,
     Dates: start: 20070319, end: 20070401

REACTIONS (8)
  - SUICIDE ATTEMPT [None]
  - ANXIETY [None]
  - NIGHTMARE [None]
  - ALCOHOL USE [None]
  - CONDITION AGGRAVATED [None]
  - AGGRESSION [None]
  - INSOMNIA [None]
  - DEPRESSION [None]
